FAERS Safety Report 8572998 (Version 3)
Quarter: 2013Q2

REPORT INFORMATION
  Report Type: Spontaneous
  Country: US (occurrence: US)
  Receive Date: 20120522
  Receipt Date: 20130422
  Transmission Date: 20140414
  Serious: Yes (Hospitalization, Other)
  Sender: FDA-Public Use
  Company Number: US-BAYER-2012-049622

PATIENT
  Age: 34 Year
  Sex: Female
  Weight: 63 kg

DRUGS (9)
  1. OCELLA [Suspect]
     Indication: CONTRACEPTION
     Dosage: UNK
     Dates: start: 2004, end: 2006
  2. OCELLA [Suspect]
     Indication: PREMENSTRUAL SYNDROME
  3. OCELLA [Suspect]
     Indication: MENSTRUATION IRREGULAR
  4. YAZ [Suspect]
     Indication: CONTRACEPTION
     Dosage: UNK
     Dates: start: 2006, end: 201005
  5. YAZ [Suspect]
     Indication: PREMENSTRUAL SYNDROME
  6. YAZ [Suspect]
     Indication: MENSTRUATION IRREGULAR
  7. INHALER [Concomitant]
     Dosage: AS NEEDED
  8. IBUPROFEN [Concomitant]
  9. PERCOCET [Concomitant]

REACTIONS (3)
  - Pulmonary embolism [None]
  - Nerve injury [None]
  - Muscle injury [None]
